FAERS Safety Report 8276895 (Version 3)
Quarter: 2013Q3

REPORT INFORMATION
  Report Type: Report from Study
  Country: MX (occurrence: MX)
  Receive Date: 20111206
  Receipt Date: 20130716
  Transmission Date: 20140515
  Serious: Yes (Other)
  Sender: FDA-Public Use
  Company Number: PHHY2011MX105303

PATIENT
  Age: 66 Year
  Sex: Female

DRUGS (5)
  1. CO-DIOVAN [Suspect]
     Indication: HYPERTENSION
     Dosage: 1 DF (160/12.5 MG) ONCE PER DAY AT THE MORNING
     Dates: start: 20100511
  2. DIOVAN [Suspect]
     Indication: HYPERTENSION
     Dosage: 80 MG ONCE BY DAY AT NIGHTS
     Dates: start: 20100511
  3. ADALAT [Concomitant]
     Indication: HYPERTENSION
     Dosage: 1 DF (1 TABLET TAKEN OCCASIONALLY)
     Dates: start: 201105
  4. AMLODIPINE [Concomitant]
     Dosage: ONCE BY DAY
     Dates: start: 201005, end: 201112
  5. METOPROLOL [Concomitant]
     Dosage: HALF TABLET DAILY AT THE MORNINGS

REACTIONS (4)
  - Deafness transitory [Recovered/Resolved]
  - Hypotension [Recovered/Resolved]
  - Dizziness [Recovered/Resolved]
  - Asthenia [Recovered/Resolved]
